FAERS Safety Report 8682702 (Version 3)
Quarter: 2013Q4

REPORT INFORMATION
  Report Type: Spontaneous
  Country: US (occurrence: US)
  Receive Date: 20120725
  Receipt Date: 20131101
  Transmission Date: 20140711
  Serious: No
  Sender: FDA-Public Use
  Company Number: US-009507513-1207USA002768

PATIENT
  Sex: 0

DRUGS (3)
  1. VARIVAX [Suspect]
     Indication: PROPHYLAXIS
  2. ZOSTAVAX [Suspect]
     Indication: PROPHYLAXIS
  3. DSM STERILE DILUENT [Suspect]

REACTIONS (2)
  - Expired drug administered [Unknown]
  - No adverse event [Unknown]
